FAERS Safety Report 5103726-X (Version None)
Quarter: 2006Q3

REPORT INFORMATION
  Report Type: 
  Country: None (occurrence: None)
  Receive Date: 20060913
  Receipt Date: 20060906
  Transmission Date: 20061208
  Serious: Yes (Hospitalization, Other)
  Sender: FDA-Public Use
  Company Number: US-JNJFOC-20060901523

PATIENT
  Sex: Female
  Weight: 72.58 kg

DRUGS (4)
  1. REMICADE [Suspect]
     Indication: RHEUMATOID ARTHRITIS
     Route: 042
  2. ZOLOFT [Concomitant]
     Indication: DEPRESSION
  3. OXYCODONE HCL [Concomitant]
     Indication: PAIN
  4. WELLBUTRIN [Concomitant]
     Indication: DEPRESSION
     Dosage: SIX YEARS

REACTIONS (1)
  - BIPOLAR I DISORDER [None]
